FAERS Safety Report 9869449 (Version 2)
Quarter: 2014Q1

REPORT INFORMATION
  Report Type: Spontaneous
  Country: US (occurrence: US)
  Receive Date: 20140205
  Receipt Date: 20140224
  Transmission Date: 20141002
  Serious: No
  Sender: FDA-Public Use
  Company Number: US-PFIZER INC-2014029591

PATIENT
  Age: 55 Year
  Sex: Male
  Weight: 96.15 kg

DRUGS (5)
  1. XELJANZ [Suspect]
     Indication: RHEUMATOID ARTHRITIS
     Dosage: 5 MG, 2X/DAY
     Route: 048
  2. LISINOPRIL [Concomitant]
     Dosage: 2.5 MG, UNK
     Route: 048
  3. CLONIDINE [Concomitant]
     Dosage: 0.1 MG, UNK
     Route: 048
  4. ALLOPURINOL [Concomitant]
     Dosage: 300 MG, UNK
     Route: 048
  5. BUTALBITAL, ACETAMINOPHEN + CAFFEINE [Concomitant]
     Dosage: UNK
     Route: 048

REACTIONS (3)
  - Migraine [Unknown]
  - Headache [Unknown]
  - Paranasal sinus hypersecretion [Unknown]
